FAERS Safety Report 24452784 (Version 1)
Quarter: 2024Q4

REPORT INFORMATION
  Report Type: Spontaneous
  Country: US (occurrence: US)
  Receive Date: 20241017
  Receipt Date: 20241017
  Transmission Date: 20250115
  Serious: No
  Sender: SUNOVION
  Company Number: US-UROVANT SCIENCES GMBH-202403-URV-000435

PATIENT
  Sex: Female
  Weight: 93.878 kg

DRUGS (4)
  1. GEMTESA [Suspect]
     Active Substance: VIBEGRON
     Dosage: 1 TAB, QD
     Route: 065
  2. GEMTESA [Suspect]
     Active Substance: VIBEGRON
     Indication: Pollakiuria
  3. GEMTESA [Suspect]
     Active Substance: VIBEGRON
     Indication: Stress urinary incontinence
  4. GEMTESA [Suspect]
     Active Substance: VIBEGRON
     Indication: Urinary tract infection

REACTIONS (2)
  - Drug ineffective [Unknown]
  - Inability to afford medication [Unknown]
